FAERS Safety Report 25937275 (Version 1)
Quarter: 2025Q4

REPORT INFORMATION
  Report Type: Report from Study
  Country: EU (occurrence: EU)
  Receive Date: 20251017
  Receipt Date: 20251017
  Transmission Date: 20260117
  Serious: Yes (Death)
  Sender: ABBVIE
  Company Number: EU-ABBVIE-6507307

PATIENT
  Age: 73 Year
  Sex: Male

DRUGS (3)
  1. CARBIDOPA [Suspect]
     Active Substance: CARBIDOPA
     Indication: Parkinson^s disease
     Dosage: MD 7.0 ML; CRT 4.3 ML/H; CRN 4.3 ML /H; ED: 2.5 ML
     Route: 050
     Dates: start: 20210930
  2. CARBIDOPA [Suspect]
     Active Substance: CARBIDOPA
  3. OMEPRAZOLE [Concomitant]
     Active Substance: OMEPRAZOLE
     Indication: Product used for unknown indication

REACTIONS (4)
  - Pulmonary oedema [Fatal]
  - Agonal respiration [Fatal]
  - Anaemia [Unknown]
  - Bedridden [Unknown]

NARRATIVE: CASE EVENT DATE: 20250101
